FAERS Safety Report 17073522 (Version 1)
Quarter: 2019Q4

REPORT INFORMATION
  Report Type: Spontaneous
  Country: IT (occurrence: IT)
  Receive Date: 20191126
  Receipt Date: 20191126
  Transmission Date: 20200122
  Serious: Yes (Other)
  Sender: FDA-Public Use
  Company Number: IT-SUN PHARMACEUTICAL INDUSTRIES LTD-2019RR-228878

PATIENT
  Age: 79 Year
  Sex: Female

DRUGS (1)
  1. OLANZAPINA SUN [Suspect]
     Active Substance: OLANZAPINE
     Indication: PSYCHOTIC DISORDER
     Dosage: 7.5 MILLIGRAM, DAILY
     Route: 048
     Dates: start: 20190301, end: 20190801

REACTIONS (2)
  - Psychotic disorder [Recovered/Resolved]
  - Drug ineffective [Recovered/Resolved]

NARRATIVE: CASE EVENT DATE: 20190301
